FAERS Safety Report 5415836-8 (Version None)
Quarter: 2007Q3

REPORT INFORMATION
  Report Type: 
  Country: None (occurrence: None)
  Receive Date: 20070713
  Receipt Date: 20070514
  Transmission Date: 20080115
  Serious: Yes (Hospitalization)
  Sender: FDA-Public Use
  Company Number: US-JNJFOC-20060904327

PATIENT
  Age: 30 Year
  Sex: Female
  Weight: 89.9936 kg

DRUGS (6)
  1. ORTHO EVRA [Suspect]
     Indication: MENSTRUATION IRREGULAR
     Dosage: TRANSDERMAL
     Route: 062
     Dates: start: 20031101, end: 20040101
  2. CATAPRES [Concomitant]
  3. NORVASC [Concomitant]
  4. MINOXIDIL [Concomitant]
  5. BENICAR [Concomitant]
  6. TIMOLOL MALEATE [Concomitant]

REACTIONS (4)
  - CEREBROVASCULAR ACCIDENT [None]
  - HYPERTENSION [None]
  - MENORRHAGIA [None]
  - TREATMENT NONCOMPLIANCE [None]
